FAERS Safety Report 5553602-3 (Version None)
Quarter: 2007Q4

REPORT INFORMATION
  Report Type: 
  Country: None (occurrence: None)
  Receive Date: 20071212
  Receipt Date: 20071212
  Transmission Date: 20080405
  Serious: Yes (Hospitalization)
  Sender: FDA-Public Use
  Company Number: None

PATIENT
  Age: 81 Year
  Sex: Female
  Weight: 84.8226 kg

DRUGS (1)
  1. PLAQUENIL [Suspect]
     Indication: ARTHRITIS
     Dosage: 2 A DAY  REACTION 11-4-07
     Dates: start: 20071020

REACTIONS (1)
  - ADVERSE DRUG REACTION [None]
